FAERS Safety Report 11588164 (Version 1)
Quarter: 2015Q4

REPORT INFORMATION
  Report Type: Report from Study
  Country: SE (occurrence: SE)
  Receive Date: 20151002
  Receipt Date: 20151002
  Transmission Date: 20160304
  Serious: Yes (Other)
  Sender: FDA-Public Use
  Company Number: SE-ROCHE-1640559

PATIENT

DRUGS (1)
  1. RITUXIMAB [Suspect]
     Active Substance: RITUXIMAB
     Indication: MULTIPLE SCLEROSIS
     Dosage: APPROXIMATELY 2000 DOSES OF 100-2000 MG RTX WAS ADMINISTERED.?MOST PATIENTS HAD BEEN TREATED WITH A
     Route: 042

REACTIONS (5)
  - Off label use [Unknown]
  - Arthralgia [Recovered/Resolved]
  - Pustular psoriasis [Recovered/Resolved]
  - Lung infiltration [Recovered/Resolved]
  - Hypersensitivity [Recovered/Resolved]
